FAERS Safety Report 6694031-9 (Version None)
Quarter: 2010Q2

REPORT INFORMATION
  Report Type: 
  Country: None (occurrence: None)
  Receive Date: 20100423
  Receipt Date: 20100421
  Transmission Date: 20101027
  Serious: Yes (Hospitalization, Other)
  Sender: FDA-Public Use
  Company Number: GB-PERRIGO-10GB008915

PATIENT
  Age: 21 Year
  Sex: Male

DRUGS (3)
  1. IBUPROFEN [Suspect]
     Indication: TOOTHACHE
     Dosage: UNK
     Route: 048
     Dates: start: 20100328, end: 20100409
  2. ANADIN [Suspect]
     Indication: TOOTHACHE
     Dosage: UNK
     Route: 048
     Dates: start: 20100328, end: 20100409
  3. AMOXICILLIN [Concomitant]
     Indication: DRUG USE FOR UNKNOWN INDICATION
     Dosage: UNK
     Route: 048

REACTIONS (7)
  - DUODENAL ULCER [None]
  - FAECES DISCOLOURED [None]
  - HAEMATEMESIS [None]
  - HAEMOGLOBIN DECREASED [None]
  - HYPOTENSION [None]
  - SYNCOPE [None]
  - TACHYCARDIA [None]
